FAERS Safety Report 5885076-7 (Version None)
Quarter: 2008Q3

REPORT INFORMATION
  Report Type: 
  Country: None (occurrence: None)
  Receive Date: 20080916
  Receipt Date: 20080908
  Transmission Date: 20090109
  Serious: Yes (Other)
  Sender: FDA-Public Use
  Company Number: US-AVENTIS-200815530US

PATIENT
  Age: 75 Year
  Sex: Female

DRUGS (7)
  1. GLYBURIDE [Suspect]
     Dosage: DOSE: UNK
  2. GLUCOPHAGE [Suspect]
     Dosage: DOSE: UNK
  3. LISINOPRIL [Suspect]
     Dosage: DOSE: UNK
  4. REVATIO [Suspect]
     Indication: PULMONARY ARTERIAL HYPERTENSION
  5. ASPIRIN [Suspect]
     Dosage: DOSE: UNK
  6. ALLOPURINOL [Suspect]
     Dosage: DOSE: UNK
  7. PRILOSEC [Suspect]
     Dosage: DOSE: UNK

REACTIONS (1)
  - DEAFNESS UNILATERAL [None]
